FAERS Safety Report 19930318 (Version 1)
Quarter: 2021Q4

REPORT INFORMATION
  Report Type: Spontaneous
  Country: US (occurrence: US)
  Receive Date: 20211007
  Receipt Date: 20211007
  Transmission Date: 20220303
  Serious: Yes (Other)
  Sender: FDA-Public Use
  Company Number: US-BAYER-2021A220718

PATIENT
  Sex: Female

DRUGS (1)
  1. MIRENA [Suspect]
     Active Substance: LEVONORGESTREL
     Indication: Contraception
     Dosage: 20 ?G, CONT
     Route: 015
     Dates: start: 20210415, end: 20210929

REACTIONS (3)
  - Device dislocation [Recovered/Resolved]
  - Genital haemorrhage [None]
  - Medical device pain [None]

NARRATIVE: CASE EVENT DATE: 20210101
